FAERS Safety Report 15922543 (Version 2)
Quarter: 2019Q1

REPORT INFORMATION
  Report Type: Spontaneous
  Country: US (occurrence: US)
  Receive Date: 20190205
  Receipt Date: 20190219
  Transmission Date: 20190417
  Serious: No
  Sender: FDA-Public Use
  Company Number: US-ALLERGAN-1811248US

PATIENT
  Age: 56 Year
  Sex: Female

DRUGS (8)
  1. JUVEDERM VOLUMA XC [Concomitant]
     Active Substance: HYALURONIC ACID\LIDOCAINE HYDROCHLORIDE
     Indication: DERMAL FILLER INJECTION
     Dosage: UNK, SINGLE
     Route: 065
     Dates: start: 20180206, end: 20180206
  2. BOTOX COSMETIC [Suspect]
     Active Substance: ONABOTULINUMTOXINA
     Indication: SKIN WRINKLING
  3. HYALURONIC ACID [Concomitant]
     Active Substance: HYALURONIC ACID
     Indication: DERMAL FILLER INJECTION
     Dosage: UNK, SINGLE
     Route: 065
  4. JUVEDERM ULTRA [Concomitant]
     Active Substance: HYALURONIC ACID
     Indication: DERMAL FILLER INJECTION
     Dosage: UNK UNK, SINGLE
     Route: 065
     Dates: start: 20180206, end: 20180206
  5. JUVEDERM ULTRA PLUS [Concomitant]
     Active Substance: HYALURONIC ACID\LIDOCAINE HYDROCHLORIDE
     Indication: DERMAL FILLER INJECTION
     Dosage: UNK, SINGLE
     Route: 065
  6. BOTOX COSMETIC [Suspect]
     Active Substance: ONABOTULINUMTOXINA
     Indication: SKIN WRINKLING
     Dosage: 56 UNITS, SINGLE
     Route: 030
     Dates: start: 20180206, end: 20180206
  7. ATORVASTATIN [Concomitant]
     Active Substance: ATORVASTATIN
     Indication: BLOOD CHOLESTEROL INCREASED
     Dosage: UNK, QD
     Route: 048
  8. BOTOX COSMETIC [Suspect]
     Active Substance: ONABOTULINUMTOXINA
     Indication: SKIN WRINKLING

REACTIONS (2)
  - Injection site pruritus [Not Recovered/Not Resolved]
  - Skin burning sensation [Not Recovered/Not Resolved]

NARRATIVE: CASE EVENT DATE: 201802
